FAERS Safety Report 4733287-6 (Version None)
Quarter: 2005Q3

REPORT INFORMATION
  Report Type: 
  Country: None (occurrence: None)
  Receive Date: 20050802
  Receipt Date: 20050719
  Transmission Date: 20060218
  Serious: Yes (Hospitalization)
  Sender: FDA-Public Use
  Company Number: 2005S1006352

PATIENT
  Age: 59 Year
  Sex: Female
  Weight: 59.8748 kg

DRUGS (9)
  1. AMITRIPTYLINE HCL [Suspect]
     Dosage: SEE IMAGE
     Route: 048
  2. REBIF [Suspect]
     Indication: MULTIPLE SCLEROSIS
     Dosage: 8.8 MCG;TIW;SC
     Route: 058
     Dates: start: 20050624
  3. LORTAB [Suspect]
     Dosage: 10 MG; UNKNOWN; PO
     Route: 048
  4. ROSUVASTATIN [Concomitant]
  5. GABAPENTIN [Concomitant]
  6. ESOMEPRAZOLE [Concomitant]
  7. CARISOPRODOL [Concomitant]
  8. BUPROPION HYDROCHORIDE [Concomitant]
  9. SERTRALINE HYDROCHLORIDE [Concomitant]

REACTIONS (8)
  - CONFUSIONAL STATE [None]
  - DEHYDRATION [None]
  - DIARRHOEA [None]
  - DRUG LEVEL INCREASED [None]
  - INCORRECT DOSE ADMINISTERED [None]
  - MALAISE [None]
  - MEDICATION ERROR [None]
  - SOMNOLENCE [None]
